FAERS Safety Report 18628751 (Version 2)
Quarter: 2020Q4

REPORT INFORMATION
  Report Type: Report from Study
  Country: JP (occurrence: JP)
  Receive Date: 20201217
  Receipt Date: 20201228
  Transmission Date: 20210114
  Serious: Yes (Death)
  Sender: FDA-Public Use
  Company Number: JP-EMD SERONO-9206583

PATIENT
  Age: 71 Year
  Sex: Male
  Weight: 64 kg

DRUGS (4)
  1. INLYTA [Suspect]
     Active Substance: AXITINIB
     Dates: start: 20200217, end: 20200409
  2. BAVENCIO [Suspect]
     Active Substance: AVELUMAB
     Indication: RENAL CELL CARCINOMA
     Dosage: 10 MG/KG, 282 ML/HR
     Route: 041
     Dates: start: 20200204, end: 20200303
  3. ATARAX-P                           /00058402/ [Concomitant]
     Active Substance: HYDROXYZINE HYDROCHLORIDE
     Indication: PREMEDICATION
     Route: 041
     Dates: start: 20200204, end: 20200303
  4. INLYTA [Suspect]
     Active Substance: AXITINIB
     Indication: RENAL CELL CARCINOMA
     Route: 048
     Dates: start: 20200204, end: 20200214

REACTIONS (1)
  - Death [Fatal]

NARRATIVE: CASE EVENT DATE: 20200813
